FAERS Safety Report 4867727-9 (Version None)
Quarter: 2005Q4

REPORT INFORMATION
  Report Type: 
  Country: None (occurrence: None)
  Receive Date: 20051222
  Receipt Date: 20020413
  Transmission Date: 20060501
  Serious: Yes (Hospitalization)
  Sender: FDA-Public Use
  Company Number: 8-98313-003X

PATIENT
  Age: 64 Year
  Sex: Female

DRUGS (1)
  1. MYLOTARG [Suspect]
     Indication: ACUTE MYELOID LEUKAEMIA
     Dosage: 9 MG/M(2), INTRAVENOUS
     Route: 042
     Dates: start: 19981105, end: 19981105

REACTIONS (6)
  - CHILLS [None]
  - DIZZINESS [None]
  - NEUTROPENIA [None]
  - PYREXIA [None]
  - TACHYCARDIA [None]
  - VOMITING [None]
